FAERS Safety Report 7727049-5 (Version None)
Quarter: 2011Q3

REPORT INFORMATION
  Report Type: 
  Country: None (occurrence: None)
  Receive Date: 20110902
  Receipt Date: 20110824
  Transmission Date: 20111222
  Serious: Yes (Hospitalization)
  Sender: FDA-Public Use
  Company Number: FR-BRISTOL-MYERS SQUIBB COMPANY-15703259

PATIENT
  Age: 79 Year
  Sex: Female

DRUGS (12)
  1. PREVISCAN [Suspect]
     Indication: ATRIAL FIBRILLATION
     Route: 048
     Dates: end: 20101203
  2. HYDROCHLOROTHIAZIDE [Suspect]
     Indication: HYPERTENSION
     Dosage: 10MG TABS,LONG RUN-05DEC10
     Route: 048
     Dates: end: 20101205
  3. DURAGESIC-100 [Suspect]
     Indication: ARTERIAL DISORDER
     Dosage: TRANSDERMAL PATCH
     Route: 062
     Dates: end: 20101204
  4. AMIODARONE HCL [Concomitant]
     Indication: ATRIAL FIBRILLATION
     Dosage: AMIODARONE DCI PHARMA
     Route: 048
  5. LISINOPRIL [Suspect]
     Indication: HYPERTENSION
     Dosage: LONG RUN-05DEC10
     Route: 048
     Dates: end: 20101205
  6. LERCANIDIPINE [Suspect]
     Indication: HYPERTENSION
     Dosage: LERCAN 10MG TABS,LONG RUN-05DEC10
     Route: 048
     Dates: end: 20101205
  7. DIAMICRON [Suspect]
     Indication: TYPE 2 DIABETES MELLITUS
     Dosage: LONG RUN-05DEC10,30MG MR TAB
     Route: 048
     Dates: end: 20101205
  8. FUROSEMIDE [Concomitant]
     Indication: HYPERTENSION
     Dosage: TABS
     Route: 048
     Dates: end: 20101214
  9. LEVOTHYROXINE SODIUM [Concomitant]
     Indication: HYPOTHYROIDISM
     Dosage: LEVOTHYROX 175,LONG RUN- ONG
  10. CIPROFLOXACIN HCL [Concomitant]
     Dates: start: 20101209, end: 20101215
  11. GLUCOPHAGE [Suspect]
     Indication: TYPE 2 DIABETES MELLITUS
     Dosage: LONG RUN-05DEC10
     Route: 048
     Dates: end: 20101205
  12. VANCOMYCIN [Concomitant]
     Dosage: VANCOMYCINE MYLAN 500MG POWDER FOR SOLN
     Route: 042
     Dates: start: 20101205, end: 20101205

REACTIONS (7)
  - INTERNATIONAL NORMALISED RATIO INCREASED [None]
  - URINARY TRACT INFECTION [None]
  - VOMITING [None]
  - ARTERIOSCLEROSIS [None]
  - ANAEMIA [None]
  - RENAL FAILURE ACUTE [None]
  - SUPERINFECTION [None]
